FAERS Safety Report 17031588 (Version 1)
Quarter: 2019Q4

REPORT INFORMATION
  Report Type: Spontaneous
  Country: US (occurrence: US)
  Receive Date: 20191113
  Receipt Date: 20191113
  Transmission Date: 20200122
  Serious: No
  Sender: FDA-Public Use
  Company Number: None

PATIENT
  Age: 43 Year
  Sex: Male
  Weight: 108 kg

DRUGS (3)
  1. PSEUDOEPINEPHRINE [Concomitant]
  2. FISH OIL [Concomitant]
     Active Substance: FISH OIL
  3. HUMIRA [Suspect]
     Active Substance: ADALIMUMAB
     Indication: ANKYLOSING SPONDYLITIS
     Dosage: ?          QUANTITY:11 INJECTION(S);OTHER FREQUENCY:EVERY TWO WEEKS;?
     Route: 058
     Dates: start: 20190501, end: 20191002

REACTIONS (2)
  - Alopecia [None]
  - Alopecia areata [None]

NARRATIVE: CASE EVENT DATE: 20190815
